FAERS Safety Report 5532335-3 (Version None)
Quarter: 2007Q4

REPORT INFORMATION
  Report Type: 
  Country: None (occurrence: None)
  Receive Date: 20071120
  Receipt Date: 20070724
  Transmission Date: 20080405
  Serious: No
  Sender: FDA-Public Use
  Company Number: WAES 0707USA04251

PATIENT
  Sex: Female
  Weight: 73.4827 kg

DRUGS (4)
  1. JANUVIA [Suspect]
     Indication: TYPE 2 DIABETES MELLITUS
     Dosage: 100 MG/DAILY/PO ; 100 MG/DAILY/PO
     Route: 048
     Dates: start: 20070109, end: 20070301
  2. JANUVIA [Suspect]
     Indication: TYPE 2 DIABETES MELLITUS
     Dosage: 100 MG/DAILY/PO ; 100 MG/DAILY/PO
     Route: 048
     Dates: start: 20070401, end: 20070701
  3. AVANDIA [Concomitant]
  4. METFORMIN HCL [Concomitant]

REACTIONS (1)
  - DYSPHONIA [None]
